FAERS Safety Report 18299719 (Version 1)
Quarter: 2020Q3

REPORT INFORMATION
  Report Type: Spontaneous
  Country: US (occurrence: US)
  Receive Date: 20200922
  Receipt Date: 20200922
  Transmission Date: 20201103
  Serious: Yes (Hospitalization)
  Sender: FDA-Public Use
  Company Number: None

PATIENT
  Age: 60 Year
  Sex: Male

DRUGS (1)
  1. CAPECITABINE TAB 500MG [Suspect]
     Active Substance: CAPECITABINE
     Route: 048
     Dates: start: 202006

REACTIONS (6)
  - Blood potassium decreased [None]
  - Blood magnesium decreased [None]
  - Diarrhoea [None]
  - Nausea [None]
  - Vomiting [None]
  - Loss of consciousness [None]

NARRATIVE: CASE EVENT DATE: 20200911
